FAERS Safety Report 16625830 (Version 2)
Quarter: 2019Q3

REPORT INFORMATION
  Report Type: Spontaneous
  Country: JP (occurrence: JP)
  Receive Date: 20190724
  Receipt Date: 20190828
  Transmission Date: 20191004
  Serious: Yes (Hospitalization)
  Sender: FDA-Public Use
  Company Number: JP-EISAI MEDICAL RESEARCH-EC-2019-058221

PATIENT
  Sex: Male

DRUGS (2)
  1. LENVIMA [Suspect]
     Active Substance: LENVATINIB
     Indication: HEPATOCELLULAR CARCINOMA
     Route: 048
     Dates: start: 20190603, end: 20190611
  2. LENVIMA [Suspect]
     Active Substance: LENVATINIB
     Route: 048
     Dates: start: 20190612, end: 2019

REACTIONS (4)
  - Hypertension [Recovered/Resolved]
  - Malaise [Recovering/Resolving]
  - Hepatic encephalopathy [Recovered/Resolved]
  - Ammonia increased [Unknown]

NARRATIVE: CASE EVENT DATE: 2019
